FAERS Safety Report 8182296-6 (Version None)
Quarter: 2012Q1

REPORT INFORMATION
  Report Type: 
  Country: None (occurrence: None)
  Receive Date: 20120302
  Receipt Date: 20120227
  Transmission Date: 20120608
  Serious: Yes (Death, Hospitalization)
  Sender: FDA-Public Use
  Company Number: PHHY2012DE015972

PATIENT
  Sex: Female
  Weight: 80 kg

DRUGS (5)
  1. ZOMETA [Suspect]
     Indication: BONE DISORDER
     Dosage: 4 MG, EVERY 4 WEEKS
     Route: 042
     Dates: start: 20110328, end: 20110502
  2. BISOPROLOL FUMARATE [Concomitant]
     Dosage: 5 MG, UNK
  3. TORSEMIDE [Concomitant]
     Dosage: 5 MG, QD
  4. TRAMADOL HYDROCHLORIDE [Concomitant]
  5. TOLVAPTAN [Concomitant]
     Dosage: 15 MG, QD2SDO
     Dates: start: 20110801

REACTIONS (15)
  - CEREBELLAR INFARCTION [None]
  - HEART RATE IRREGULAR [None]
  - NEOPLASM PROGRESSION [None]
  - METASTASES TO CENTRAL NERVOUS SYSTEM [None]
  - METASTASES TO LYMPH NODES [None]
  - HYPONATRAEMIA [None]
  - CENTRAL NERVOUS SYSTEM LESION [None]
  - EYELID PTOSIS [None]
  - HYPOKALAEMIA [None]
  - GENERAL PHYSICAL HEALTH DETERIORATION [None]
  - NEOPLASM MALIGNANT [None]
  - METASTASES TO LUNG [None]
  - GAIT SPASTIC [None]
  - METASTASES TO LIVER [None]
  - APHASIA [None]
